FAERS Safety Report 16299488 (Version 2)
Quarter: 2019Q2

REPORT INFORMATION
  Report Type: Spontaneous
  Country: DE (occurrence: DE)
  Receive Date: 20190510
  Receipt Date: 20190522
  Transmission Date: 20190711
  Serious: Yes (Death, Other)
  Sender: FDA-Public Use
  Company Number: DE-ELI_LILLY_AND_COMPANY-DE201905003049

PATIENT
  Age: 83 Year
  Sex: Female

DRUGS (1)
  1. TRULICITY [Suspect]
     Active Substance: DULAGLUTIDE
     Indication: PRODUCT USED FOR UNKNOWN INDICATION
     Dosage: 0.75 MG, UNKNOWN
     Route: 065
     Dates: start: 20190109, end: 20190206

REACTIONS (7)
  - Hypophagia [Unknown]
  - Somnolence [Unknown]
  - Blood glucose abnormal [Unknown]
  - Hypovolaemia [Fatal]
  - Decreased appetite [Unknown]
  - Renal failure [Fatal]
  - Dehydration [Fatal]

NARRATIVE: CASE EVENT DATE: 201902
